FAERS Safety Report 10177706 (Version 1)
Quarter: 2014Q2

REPORT INFORMATION
  Report Type: Spontaneous
  Country: US (occurrence: US)
  Receive Date: 20140516
  Receipt Date: 20140516
  Transmission Date: 20141212
  Serious: No
  Sender: FDA-Public Use
  Company Number: US-SA-2014SA027510

PATIENT
  Age: 47 Year
  Sex: Male

DRUGS (2)
  1. APIDRA SOLOSTAR [Suspect]
     Indication: TYPE 1 DIABETES MELLITUS
     Dosage: DOSE:4-8 UNITS?FREQUENCY: TID, SLIDING SCALE
     Route: 065
     Dates: start: 201401
  2. SOLOSTAR [Concomitant]

REACTIONS (2)
  - Injection site pain [Unknown]
  - Blood glucose increased [Unknown]
